FAERS Safety Report 10381822 (Version 3)
Quarter: 2015Q1

REPORT INFORMATION
  Report Type: Spontaneous
  Country: CA (occurrence: CA)
  Receive Date: 20140813
  Receipt Date: 20150204
  Transmission Date: 20150720
  Serious: Yes (Hospitalization, Other)
  Sender: FDA-Public Use
  Company Number: CA-GLAXOSMITHKLINE-A1058358A

PATIENT
  Sex: Female
  Weight: 61 kg

DRUGS (1)
  1. BENLYSTA [Suspect]
     Active Substance: BELIMUMAB
     Indication: SYSTEMIC LUPUS ERYTHEMATOSUS
     Dosage: 610 MG AT 0, 2 AND 4 WKS THEN EVERY 4 WKS
     Route: 042
     Dates: start: 20140106

REACTIONS (3)
  - Vein disorder [Unknown]
  - Hospitalisation [Unknown]
  - Infection [Recovered/Resolved]
